FAERS Safety Report 8956468 (Version 2)
Quarter: 2012Q4

REPORT INFORMATION
  Report Type: 
  Country: FR (occurrence: FR)
  Receive Date: 20121210
  Receipt Date: 20121214
  Transmission Date: 20130627
  Serious: No
  Sender: FDA-Public Use
  Company Number: FR-ASTRAZENECA-2012SE90956

PATIENT
  Age: 42 Year
  Sex: Male

DRUGS (1)
  1. BRILIQUE [Suspect]
     Route: 048

REACTIONS (3)
  - Rash vesicular [Recovered/Resolved]
  - Skin exfoliation [Unknown]
  - Urticaria [Recovered/Resolved]
